FAERS Safety Report 16984433 (Version 1)
Quarter: 2019Q4

REPORT INFORMATION
  Report Type: Spontaneous
  Country: US (occurrence: US)
  Receive Date: 20191101
  Receipt Date: 20191101
  Transmission Date: 20200122
  Serious: No
  Sender: FDA-Public Use
  Company Number: US-FARMAPROD-201909-1369

PATIENT
  Sex: Female

DRUGS (6)
  1. XIIDRA [Concomitant]
     Active Substance: LIFITEGRAST
     Dosage: FORM OF ADMINISTRATION: DROPERETTE
  2. MOXIFLOXACIN. [Concomitant]
     Active Substance: MOXIFLOXACIN
  3. OXERVATE [Suspect]
     Active Substance: CENEGERMIN-BKBJ
     Indication: NEUROTROPHIC KERATOPATHY
     Route: 047
  4. TIMOPTIC [Concomitant]
     Active Substance: TIMOLOL MALEATE
  5. ZIOPTAN [Concomitant]
     Active Substance: TAFLUPROST
     Dosage: FORM OF ADMINISTRATION: DROPERETTE
  6. LOTEMAX [Concomitant]
     Active Substance: LOTEPREDNOL ETABONATE
     Dosage: FORM OF ADMINISTRATION: DROPS GEL

REACTIONS (3)
  - Eye pain [Unknown]
  - Eyelid pain [Unknown]
  - Eye swelling [Unknown]
